FAERS Safety Report 23254412 (Version 1)
Quarter: 2023Q4

REPORT INFORMATION
  Report Type: Report from Study
  Country: CH (occurrence: CH)
  Receive Date: 20231202
  Receipt Date: 20231202
  Transmission Date: 20240110
  Serious: Yes (Hospitalization, Other)
  Sender: FDA-Public Use
  Company Number: CH-BAYER-2021-184814

PATIENT
  Sex: Male

DRUGS (4)
  1. VITRAKVI [Suspect]
     Active Substance: LAROTRECTINIB
     Indication: Neoplasm malignant
     Dosage: 30 MG, BID
     Route: 048
     Dates: start: 20210514
  2. VITRAKVI [Suspect]
     Active Substance: LAROTRECTINIB
     Indication: Neoplasm malignant
     Dosage: UNK
     Dates: start: 20210709
  3. CLEMASTINE FUMARATE [Concomitant]
     Active Substance: CLEMASTINE FUMARATE
     Dosage: UNK UNK, PRN
     Dates: start: 20210514, end: 20210521
  4. ELOTRANS [GLUCOSE;POTASSIUM CHLORIDE;SODIUM BICARBONATE;SODIUM CHL [Concomitant]
     Dosage: UNK
     Dates: start: 20210705, end: 20210707

REACTIONS (3)
  - Nausea [Recovered/Resolved with Sequelae]
  - Muscular weakness [Recovered/Resolved]
  - Vomiting [Recovered/Resolved]

NARRATIVE: CASE EVENT DATE: 20210520
